FAERS Safety Report 5315777-0 (Version None)
Quarter: 2007Q2

REPORT INFORMATION
  Report Type: 
  Country: None (occurrence: None)
  Receive Date: 20070503
  Receipt Date: 20070430
  Transmission Date: 20071010
  Serious: Yes (Life-Threatening, Hospitalization, Other)
  Sender: FDA-Public Use
  Company Number: US-GLAXOSMITHKLINE-A0640580A

PATIENT
  Age: 36 Year
  Sex: Male
  Weight: 82.7 kg

DRUGS (9)
  1. EPZICOM [Suspect]
     Indication: HIV INFECTION
     Dosage: 1TAB PER DAY
     Route: 048
     Dates: start: 20070125, end: 20070202
  2. ANTIRETROVIRAL MEDICATIONS [Concomitant]
  3. REYATAZ [Concomitant]
     Indication: HIV INFECTION
     Dosage: 400MG PER DAY
     Dates: start: 20070125
  4. ZYRTEC [Concomitant]
  5. ZYRTEC-D [Concomitant]
  6. DOXYCYCLINE [Concomitant]
  7. RETIN-A [Concomitant]
  8. ALLEGRA D 24 HOUR [Concomitant]
  9. PATANOL [Concomitant]

REACTIONS (14)
  - ACCIDENTAL EXPOSURE [None]
  - DIARRHOEA [None]
  - FATIGUE [None]
  - GASTROINTESTINAL DISORDER [None]
  - HEADACHE [None]
  - HYPERSENSITIVITY [None]
  - HYPOTENSION [None]
  - NAUSEA [None]
  - PYREXIA [None]
  - RASH [None]
  - RESPIRATORY TRACT CONGESTION [None]
  - TREMOR [None]
  - URTICARIA [None]
  - VOMITING [None]
